FAERS Safety Report 16678497 (Version 1)
Quarter: 2019Q3

REPORT INFORMATION
  Report Type: Spontaneous
  Country: US (occurrence: US)
  Receive Date: 20190807
  Receipt Date: 20190807
  Transmission Date: 20191004
  Serious: No
  Sender: FDA-Public Use
  Company Number: US-009507513-1908USA000452

PATIENT
  Age: 42 Year
  Sex: Female

DRUGS (2)
  1. NUVARING [Suspect]
     Active Substance: ETHINYL ESTRADIOL\ETONOGESTREL
     Dosage: 1 RING EVERY 3 WEEKS
     Route: 067
     Dates: start: 20190615, end: 20190706
  2. NUVARING [Suspect]
     Active Substance: ETHINYL ESTRADIOL\ETONOGESTREL
     Dosage: 1 RING EVERY 3 WEEKS
     Route: 067
     Dates: start: 20190706, end: 20190727

REACTIONS (4)
  - Product packaging quantity issue [Unknown]
  - No adverse event [Unknown]
  - Incorrect product administration duration [Unknown]
  - Product dose omission [Unknown]

NARRATIVE: CASE EVENT DATE: 20190706
